FAERS Safety Report 6785166-0 (Version None)
Quarter: 2010Q2

REPORT INFORMATION
  Report Type: 
  Country: None (occurrence: None)
  Receive Date: 20100618
  Receipt Date: 20100609
  Transmission Date: 20101027
  Serious: Yes (Death)
  Sender: FDA-Public Use
  Company Number: IDA-00359

PATIENT
  Age: 60 Year
  Sex: Male

DRUGS (7)
  1. PROPRANOLOL [Suspect]
     Dosage: 40 MG, ONCE, ORAL
     Route: 048
     Dates: start: 20100317, end: 20100317
  2. ISOPTIN [Suspect]
     Indication: TACHYCARDIA
     Dosage: 240 MG, TABLET ER , DAILY; ORAL
     Route: 048
     Dates: start: 20100226, end: 20100317
  3. METFORMIN HCL [Concomitant]
  4. VASTAREL (TRIMETAZIDINE HYDROCHLORIDE) [Concomitant]
  5. OMEPRAZOLE [Concomitant]
  6. FUROSEMIDE [Concomitant]
  7. ALDACTONE [Concomitant]

REACTIONS (12)
  - ABDOMINAL PAIN [None]
  - ACIDOSIS [None]
  - ATRIOVENTRICULAR BLOCK COMPLETE [None]
  - CARDIAC ARREST [None]
  - COLLATERAL CIRCULATION [None]
  - DIZZINESS [None]
  - DRUG INTERACTION [None]
  - DYSPNOEA [None]
  - HYPOTENSION [None]
  - OVERDOSE [None]
  - PALLOR [None]
  - PHOSPHENES [None]
